FAERS Safety Report 12467603 (Version 2)
Quarter: 2016Q2

REPORT INFORMATION
  Report Type: Spontaneous
  Country: SE (occurrence: SE)
  Receive Date: 20160615
  Receipt Date: 20160629
  Transmission Date: 20160815
  Serious: Yes (Hospitalization)
  Sender: FDA-Public Use
  Company Number: SE-SUN PHARMACEUTICAL INDUSTRIES LTD-2016R1-118275

PATIENT
  Age: 48 Year
  Sex: Male

DRUGS (3)
  1. KETOBEMIDONE [Suspect]
     Active Substance: KETOBEMIDONE
     Indication: PRODUCT USED FOR UNKNOWN INDICATION
     Dosage: UNK
     Route: 048
  2. PARACETAMOL [Suspect]
     Active Substance: ACETAMINOPHEN
     Indication: PRODUCT USED FOR UNKNOWN INDICATION
     Dosage: UNK
     Route: 048
  3. CODEINE [Suspect]
     Active Substance: CODEINE
     Indication: PRODUCT USED FOR UNKNOWN INDICATION
     Dosage: 6.3 UNK, UNK
     Route: 048

REACTIONS (4)
  - Overdose [Unknown]
  - Loss of consciousness [Unknown]
  - Toxicity to various agents [Unknown]
  - Liver injury [Unknown]
